FAERS Safety Report 5736234-3 (Version None)
Quarter: 2008Q2

REPORT INFORMATION
  Report Type: 
  Country: None (occurrence: None)
  Receive Date: 20080509
  Receipt Date: 20080509
  Transmission Date: 20081010
  Serious: Yes (Life-Threatening, Hospitalization)
  Sender: FDA-Public Use
  Company Number: None

PATIENT
  Sex: Female
  Weight: 48.5349 kg

DRUGS (1)
  1. DIGITEK  250 MCG  BERTEK PHARM [Suspect]
     Indication: BLOOD PRESSURE
     Dosage: PO
     Route: 048
     Dates: start: 20071111, end: 20080215

REACTIONS (2)
  - BLOOD PRESSURE DECREASED [None]
  - MYOCARDIAL INFARCTION [None]
